FAERS Safety Report 12563245 (Version 1)
Quarter: 2016Q3

REPORT INFORMATION
  Report Type: Spontaneous
  Country: US (occurrence: US)
  Receive Date: 20160715
  Receipt Date: 20160715
  Transmission Date: 20161109
  Serious: Yes (Hospitalization, Other)
  Sender: FDA-Public Use
  Company Number: US-TEVA-676963USA

PATIENT
  Age: 79 Year
  Sex: Female

DRUGS (1)
  1. AMIODARONE [Suspect]
     Active Substance: AMIODARONE
     Indication: CARDIOVERSION
     Route: 042

REACTIONS (2)
  - Kounis syndrome [Unknown]
  - Vasodilatation [Unknown]
